FAERS Safety Report 10310120 (Version 2)
Quarter: 2014Q3

REPORT INFORMATION
  Report Type: Spontaneous
  Country: BE (occurrence: BE)
  Receive Date: 20140717
  Receipt Date: 20140801
  Transmission Date: 20150326
  Serious: Yes (Life-Threatening, Hospitalization)
  Sender: FDA-Public Use
  Company Number: BE-JNJFOC-20140709337

PATIENT
  Age: 80 Year
  Sex: Male

DRUGS (8)
  1. XARELTO [Suspect]
     Active Substance: RIVAROXABAN
     Indication: EMBOLISM VENOUS
     Route: 048
  2. L-THYROXINE [Concomitant]
     Active Substance: LEVOTHYROXINE
     Route: 048
  3. APOCARD RETARD [Concomitant]
     Route: 065
  4. XARELTO [Suspect]
     Active Substance: RIVAROXABAN
     Indication: DEEP VEIN THROMBOSIS
     Route: 048
  5. PANTOPRAZOLE [Concomitant]
     Active Substance: PANTOPRAZOLE SODIUM
     Route: 048
  6. EMCONCOR [Concomitant]
     Active Substance: BISOPROLOL FUMARATE
     Route: 048
  7. XARELTO [Suspect]
     Active Substance: RIVAROXABAN
     Indication: DEEP VEIN THROMBOSIS
     Route: 048
     Dates: start: 20140514, end: 20140612
  8. XARELTO [Suspect]
     Active Substance: RIVAROXABAN
     Indication: EMBOLISM VENOUS
     Route: 048
     Dates: start: 20140514, end: 20140612

REACTIONS (7)
  - Burning sensation [Unknown]
  - Syncope [Unknown]
  - Fall [Unknown]
  - Malaise [Unknown]
  - Wound [Unknown]
  - Dizziness [Unknown]
  - Cerebral haematoma [Unknown]

NARRATIVE: CASE EVENT DATE: 20140612
